FAERS Safety Report 15307598 (Version 1)
Quarter: 2018Q3

REPORT INFORMATION
  Report Type: Spontaneous
  Country: US (occurrence: US)
  Receive Date: 20180810
  Receipt Date: 20180810
  Transmission Date: 20181010
  Serious: No
  Sender: FDA-Public Use
  Company Number: None

PATIENT
  Age: 22 Year
  Sex: Female
  Weight: 111.13 kg

DRUGS (5)
  1. LAMOTRIGINE. [Concomitant]
     Active Substance: LAMOTRIGINE
  2. GABAPENTIN. [Concomitant]
     Active Substance: GABAPENTIN
  3. HAIR SKIN AND NAILS [Concomitant]
  4. SERENITE PLUS [Concomitant]
  5. BUPRENORPHINE?NALOXONE 8?2MG (GENERIC FOR SUBOXONE) [Suspect]
     Active Substance: BUPRENORPHINE HYDROCHLORIDE\NALOXONE HYDROCHLORIDE
     Indication: DRUG DEPENDENCE
     Dosage: ?          QUANTITY:2 DF DOSAGE FORM;?
     Route: 048
     Dates: start: 20180327

REACTIONS (4)
  - Headache [None]
  - Dyspepsia [None]
  - Abdominal pain upper [None]
  - Migraine [None]

NARRATIVE: CASE EVENT DATE: 201803
